FAERS Safety Report 25505324 (Version 1)
Quarter: 2025Q3

REPORT INFORMATION
  Report Type: Spontaneous
  Country: CA (occurrence: CA)
  Receive Date: 20250702
  Receipt Date: 20250702
  Transmission Date: 20251020
  Serious: Yes (Other)
  Sender: MYLAN
  Company Number: CA-MYLANLABS-2025M1054802

PATIENT
  Sex: Female

DRUGS (3)
  1. ISOTRETINOIN [Interacting]
     Active Substance: ISOTRETINOIN
     Indication: Product used for unknown indication
  2. AZITHROMYCIN [Interacting]
     Active Substance: AZITHROMYCIN
     Indication: Product used for unknown indication
  3. MIRENA [Interacting]
     Active Substance: LEVONORGESTREL
     Indication: Product used for unknown indication

REACTIONS (3)
  - Bronchitis [Unknown]
  - Drug interaction [Unknown]
  - Maternal exposure during pregnancy [Unknown]
